FAERS Safety Report 13507899 (Version 1)
Quarter: 2017Q2

REPORT INFORMATION
  Report Type: Spontaneous
  Country: US (occurrence: US)
  Receive Date: 20170503
  Receipt Date: 20170503
  Transmission Date: 20170830
  Serious: No
  Sender: FDA-Public Use
  Company Number: None

PATIENT
  Age: 9 Year
  Sex: Male

DRUGS (1)
  1. OMNITROPE [Suspect]
     Active Substance: SOMATROPIN
     Indication: BODY HEIGHT BELOW NORMAL
     Dosage: DOSE - 20 UNITS?FREQUENCY - 6 TIMES A WEEK
     Route: 058
     Dates: start: 20170407

REACTIONS (1)
  - Headache [None]

NARRATIVE: CASE EVENT DATE: 20170430
